FAERS Safety Report 16792771 (Version 8)
Quarter: 2022Q2

REPORT INFORMATION
  Report Type: Spontaneous
  Country: FR (occurrence: FR)
  Receive Date: 20190910
  Receipt Date: 20220620
  Transmission Date: 20220721
  Serious: Yes (Death, Life-Threatening, Hospitalization, Other)
  Sender: FDA-Public Use
  Company Number: PHHY2019FR207971

PATIENT
  Age: 37 Year
  Sex: Male
  Weight: 91 kg

DRUGS (14)
  1. PAROXETINE HYDROCHLORIDE [Suspect]
     Active Substance: PAROXETINE HYDROCHLORIDE
     Indication: Product used for unknown indication
     Dosage: 560 MG
     Route: 048
  2. IBUPROFEN [Suspect]
     Active Substance: IBUPROFEN
     Indication: Product used for unknown indication
     Dosage: 2.4 G
     Route: 048
  3. IBUPROFEN [Suspect]
     Active Substance: IBUPROFEN
     Dosage: 12.4 G (INGESTED IBUPROFEN (12.4 G)
     Route: 048
  4. TRIMEBUTINE [Suspect]
     Active Substance: TRIMEBUTINE
     Indication: Product used for unknown indication
     Dosage: 2 G (POSSIBLY 2 G TOTAL) (2000 MG)
     Route: 048
  5. ALPRAZOLAM [Suspect]
     Active Substance: ALPRAZOLAM
     Indication: Product used for unknown indication
     Dosage: 15 MG (POSSIBLY 15 MG TOTAL, 30 MG OR 0.33MG/KG)
     Route: 048
  6. DESLORATADINE [Suspect]
     Active Substance: DESLORATADINE
     Indication: Product used for unknown indication
     Dosage: 150 MG, UNK
     Route: 048
  7. PREDNISONE [Suspect]
     Active Substance: PREDNISONE
     Indication: Product used for unknown indication
     Dosage: 600 MG (POSSIBLY 600 MG TOTAL)
     Route: 048
  8. IBUPROFEN [Suspect]
     Active Substance: IBUPROFEN
     Indication: Product used for unknown indication
     Dosage: 6 DOSAGE FORM
     Route: 048
  9. COLCHICINE [Suspect]
     Active Substance: COLCHICINE
     Indication: Product used for unknown indication
     Dosage: 30 MG (30 MG OR 0.33MG/KG)
     Route: 048
  10. COLCHICINE [Suspect]
     Active Substance: COLCHICINE
     Dosage: 0.3 MG (POSSIBLY 0.30 MG TOTAL)
     Route: 048
  11. LEVOTHYROXINE SODIUM [Suspect]
     Active Substance: LEVOTHYROXINE SODIUM
     Indication: Product used for unknown indication
     Dosage: UNK
     Route: 048
  12. DOBUTAMINE [Concomitant]
     Active Substance: DOBUTAMINE HYDROCHLORIDE
     Indication: Product used for unknown indication
     Dosage: UNK
     Route: 065
  13. NOREPINEPHRINE [Concomitant]
     Active Substance: NOREPINEPHRINE
     Indication: Product used for unknown indication
     Dosage: UNK
     Route: 065
  14. HYDROCORTISONE HEMISUCCINATE [Concomitant]
     Active Substance: HYDROCORTISONE HEMISUCCINATE
     Indication: Product used for unknown indication
     Dosage: UNK
     Route: 065

REACTIONS (10)
  - Completed suicide [Fatal]
  - Acute kidney injury [Fatal]
  - Disseminated intravascular coagulation [Fatal]
  - Intestinal ischaemia [Fatal]
  - Shock [Fatal]
  - Hyperleukocytosis [Fatal]
  - Hepatic failure [Fatal]
  - Cardiogenic shock [Fatal]
  - Leukocytosis [Fatal]
  - Intentional overdose [Fatal]

NARRATIVE: CASE EVENT DATE: 20180810
